FAERS Safety Report 18345700 (Version 2)
Quarter: 2020Q4

REPORT INFORMATION
  Report Type: Report from Study
  Country: US (occurrence: US)
  Receive Date: 20201005
  Receipt Date: 20201026
  Transmission Date: 20210114
  Serious: Yes (Death)
  Sender: FDA-Public Use
  Company Number: US-EXELIXIS-CABO-20033533

PATIENT
  Sex: Male

DRUGS (14)
  1. CABOMETYX [Suspect]
     Active Substance: CABOZANTINIB S-MALATE
     Indication: RENAL CANCER
     Dosage: 60 MG, QD
     Route: 048
     Dates: start: 20170706
  2. FUROSEMIDE. [Concomitant]
     Active Substance: FUROSEMIDE
  3. OXYCODONE [Concomitant]
     Active Substance: OXYCODONE
  4. VITAMIN B12 [Concomitant]
     Active Substance: CYANOCOBALAMIN
  5. ATORVASTATIN [Concomitant]
     Active Substance: ATORVASTATIN
  6. INDOMETHACIN. [Concomitant]
     Active Substance: INDOMETHACIN
  7. CABOMETYX [Suspect]
     Active Substance: CABOZANTINIB S-MALATE
     Indication: METASTATIC CARCINOID TUMOUR
     Dosage: 40 MG, QD
     Route: 048
  8. CENTRUM [Concomitant]
     Active Substance: VITAMINS
  9. CARVEDILOL. [Concomitant]
     Active Substance: CARVEDILOL
  10. LEVOTHYROXINE SODIUM. [Concomitant]
     Active Substance: LEVOTHYROXINE SODIUM
  11. TELMISARTAN. [Concomitant]
     Active Substance: TELMISARTAN
  12. TYLENOL [Concomitant]
     Active Substance: ACETAMINOPHEN
  13. ZYRTEC [Concomitant]
     Active Substance: CETIRIZINE HYDROCHLORIDE
  14. COENZYME Q10 [Concomitant]
     Active Substance: DIETARY SUPPLEMENT\UBIDECARENONE

REACTIONS (1)
  - Malignant neoplasm progression [Fatal]
